FAERS Safety Report 21214096 (Version 1)
Quarter: 2022Q3

REPORT INFORMATION
  Report Type: Spontaneous
  Country: IL (occurrence: IL)
  Receive Date: 20220816
  Receipt Date: 20220816
  Transmission Date: 20221027
  Serious: Yes (Other)
  Sender: FDA-Public Use
  Company Number: IL-TEVA-2022-IL-2064809

PATIENT
  Age: 68 Year
  Sex: Female

DRUGS (1)
  1. OXALIPLATIN [Suspect]
     Active Substance: OXALIPLATIN
     Indication: Product used for unknown indication
     Route: 065
     Dates: start: 20220628

REACTIONS (2)
  - Cold sweat [Unknown]
  - Erythema [Unknown]

NARRATIVE: CASE EVENT DATE: 20220101
